FAERS Safety Report 10094770 (Version 1)
Quarter: 2014Q2

REPORT INFORMATION
  Report Type: Spontaneous
  Country: US (occurrence: US)
  Receive Date: 20140422
  Receipt Date: 20140422
  Transmission Date: 20141212
  Serious: No
  Sender: FDA-Public Use
  Company Number: US-PFIZER INC-2014107316

PATIENT
  Sex: Female

DRUGS (2)
  1. AMLODIPINE BESILATE [Suspect]
     Dosage: 5 MG, 2X/DAY
  2. AMLODIPINE BESILATE [Suspect]
     Dosage: 10 MG, 2X/DAY

REACTIONS (2)
  - Drug hypersensitivity [Unknown]
  - Malaise [Unknown]
